FAERS Safety Report 16916960 (Version 2)
Quarter: 2019Q4

REPORT INFORMATION
  Report Type: Spontaneous
  Country: NL (occurrence: NL)
  Receive Date: 20191015
  Receipt Date: 20191222
  Transmission Date: 20200122
  Serious: Yes (Hospitalization)
  Sender: FDA-Public Use
  Company Number: NL-AUROBINDO-AUR-APL-2019-066458

PATIENT
  Age: 62 Year
  Sex: Male

DRUGS (2)
  1. VORICONAZOLE. [Suspect]
     Active Substance: VORICONAZOLE
     Indication: BRONCHOPULMONARY ASPERGILLOSIS
     Dosage: 400 MILLIGRAM, EVERY OTHER DAY
     Route: 065
  2. VORICONAZOLE. [Suspect]
     Active Substance: VORICONAZOLE
     Dosage: 400 MILLIGRAM, TWO TIMES A DAY (800 MG , QD)
     Route: 065

REACTIONS (2)
  - Periostitis [Recovered/Resolved]
  - Weight decreased [Recovered/Resolved]
